FAERS Safety Report 13969391 (Version 3)
Quarter: 2017Q4

REPORT INFORMATION
  Report Type: Report from Study
  Country: CO (occurrence: CO)
  Receive Date: 20170914
  Receipt Date: 20171022
  Transmission Date: 20180321
  Serious: Yes (Hospitalization)
  Sender: FDA-Public Use
  Company Number: PHHY2017CO135511

PATIENT
  Sex: Male
  Weight: 60 kg

DRUGS (2)
  1. GILENYA [Suspect]
     Active Substance: FINGOLIMOD HYDROCHLORIDE
     Indication: MULTIPLE SCLEROSIS
     Dosage: 0.5 MG, QD
     Route: 048
     Dates: start: 20170904
  2. RANITIDINE. [Concomitant]
     Active Substance: RANITIDINE
     Indication: GASTRITIS
     Dosage: 500 MG, UNK
     Route: 048

REACTIONS (6)
  - Hypoaesthesia [Unknown]
  - Gait disturbance [Unknown]
  - Muscular weakness [Unknown]
  - Anxiety [Unknown]
  - Limb discomfort [Unknown]
  - Metamorphopsia [Unknown]
